FAERS Safety Report 20018758 (Version 1)
Quarter: 2021Q4

REPORT INFORMATION
  Report Type: Spontaneous
  Country: US (occurrence: US)
  Receive Date: 20211101
  Receipt Date: 20211101
  Transmission Date: 20220303
  Serious: Yes (Other)
  Sender: FDA-Public Use
  Company Number: US-TAKEDA-2021TUS067009

PATIENT
  Sex: Female
  Weight: 54 kg

DRUGS (5)
  1. DEXILANT [Suspect]
     Active Substance: DEXLANSOPRAZOLE
     Indication: Barrett^s oesophagus
     Dosage: 60 MILLIGRAM, QD
     Route: 065
     Dates: start: 20211024
  2. VITAMIN D [Concomitant]
     Active Substance: VITAMIN D NOS
     Dosage: UNK
     Route: 065
  3. VITAMINS [Concomitant]
     Active Substance: VITAMINS
     Dosage: UNK
     Route: 065
  4. MAGNESIUM [Concomitant]
     Active Substance: MAGNESIUM
     Dosage: UNK
     Route: 065
  5. OXCAL [Concomitant]
     Dosage: UNK
     Route: 065

REACTIONS (5)
  - Coeliac disease [Unknown]
  - Product use in unapproved indication [Unknown]
  - Irritability [Recovering/Resolving]
  - Flatulence [Unknown]
  - Diarrhoea [Unknown]
